FAERS Safety Report 24074883 (Version 1)
Quarter: 2024Q3

REPORT INFORMATION
  Report Type: Spontaneous
  Country: US (occurrence: US)
  Receive Date: 20240710
  Receipt Date: 20240710
  Transmission Date: 20241016
  Serious: No
  Sender: PIERRE FABRE MEDICAMENT
  Company Number: US-PFM-2023-06375

PATIENT
  Sex: Female
  Weight: 10.8 kg

DRUGS (2)
  1. HEMANGEOL [Suspect]
     Active Substance: PROPRANOLOL HYDROCHLORIDE
     Indication: Haemangioma
     Dosage: 4 ML, BID (2/DAY)
     Route: 048
  2. HEMANGEOL [Suspect]
     Active Substance: PROPRANOLOL HYDROCHLORIDE
     Dosage: 4.2 ML, UNK
     Route: 065

REACTIONS (7)
  - Abnormal faeces [Recovering/Resolving]
  - Sleep disorder [Recovering/Resolving]
  - Nasopharyngitis [Recovering/Resolving]
  - Pyrexia [Recovering/Resolving]
  - Rhinorrhoea [Unknown]
  - Product administered to patient of inappropriate age [Unknown]
  - Off label use [Unknown]
